FAERS Safety Report 12608472 (Version 1)
Quarter: 2016Q3

REPORT INFORMATION
  Report Type: Spontaneous
  Country: US (occurrence: US)
  Receive Date: 20160729
  Receipt Date: 20160729
  Transmission Date: 20161109
  Serious: No
  Sender: FDA-Public Use
  Company Number: US-ELI_LILLY_AND_COMPANY-US201607012165

PATIENT
  Age: 52 Year
  Sex: Female

DRUGS (2)
  1. HUMALOG [Suspect]
     Active Substance: INSULIN LISPRO
     Indication: TYPE 1 DIABETES MELLITUS
     Dosage: SLIDING SCALE, TID
     Dates: start: 201605
  2. TOUJEO [Concomitant]
     Active Substance: INSULIN GLARGINE

REACTIONS (3)
  - Incorrect dose administered [Recovered/Resolved]
  - Blood glucose increased [Recovered/Resolved]
  - Malaise [Recovered/Resolved]

NARRATIVE: CASE EVENT DATE: 20160712
